FAERS Safety Report 11873757 (Version 2)
Quarter: 2016Q1

REPORT INFORMATION
  Report Type: Spontaneous
  Country: US (occurrence: US)
  Receive Date: 20151229
  Receipt Date: 20160111
  Transmission Date: 20160526
  Serious: Yes (Other)
  Sender: FDA-Public Use
  Company Number: US-AUROBINDO-AUR-APL-2015-11655

PATIENT
  Age: 56 Year
  Sex: Male

DRUGS (1)
  1. OXYCODONE [Suspect]
     Active Substance: OXYCODONE
     Indication: MIGRAINE
     Dosage: 90 MG, DAILY
     Route: 065

REACTIONS (4)
  - Drug ineffective [Unknown]
  - Migraine [Recovering/Resolving]
  - Condition aggravated [Recovering/Resolving]
  - Drug dependence [Unknown]
